FAERS Safety Report 4602977-8 (Version None)
Quarter: 2005Q1

REPORT INFORMATION
  Report Type: 
  Country: None (occurrence: None)
  Receive Date: 20050307
  Receipt Date: 20050218
  Transmission Date: 20050727
  Serious: Yes (Hospitalization)
  Sender: FDA-Public Use
  Company Number: 10338

PATIENT
  Sex: Female

DRUGS (1)
  1. METHOTREXATE [Suspect]
     Indication: RHEUMATOID ARTHRITIS
     Dosage: 7.5 MG ONCE

REACTIONS (7)
  - CAESAREAN SECTION [None]
  - CYSTIC FIBROSIS [None]
  - DRUG EXPOSURE DURING PREGNANCY [None]
  - ILEAL PERFORATION [None]
  - MULTIPLE CONGENITAL ABNORMALITIES [None]
  - NEONATAL RESPIRATORY DISTRESS SYNDROME [None]
  - PLACENTA PRAEVIA [None]
